FAERS Safety Report 8575344-2 (Version None)
Quarter: 2012Q3

REPORT INFORMATION
  Report Type: 
  Country: None (occurrence: None)
  Receive Date: 20120807
  Receipt Date: 20120802
  Transmission Date: 20120928
  Serious: No
  Sender: FDA-Public Use
  Company Number: US-PFIZER INC-2012189135

PATIENT
  Age: 58 Year
  Sex: Female

DRUGS (3)
  1. MEDROXYPROGESTERONE ACETATE [Suspect]
     Dosage: 10 MG, 1X/DAY
     Route: 048
  2. SYNTHROID [Concomitant]
     Indication: HYPOTHYROIDISM
     Dosage: 112 UG, 1X/DAY
  3. THYROID [Concomitant]
     Indication: HYPOTHYROIDISM
     Dosage: 32 MG, 1X/DAY

REACTIONS (2)
  - PRODUCT SIZE ISSUE [None]
  - HOT FLUSH [None]
